FAERS Safety Report 7339777-4 (Version None)
Quarter: 2011Q1

REPORT INFORMATION
  Report Type: 
  Country: None (occurrence: None)
  Receive Date: 20110309
  Receipt Date: 20100112
  Transmission Date: 20110831
  Serious: No
  Sender: FDA-Public Use
  Company Number: US-BAYER-201011346NA

PATIENT
  Sex: Female

DRUGS (2)
  1. MIRENA [Suspect]
     Dosage: 20 MCG/24HR, UNK
     Dates: start: 20061201, end: 20100108
  2. ADVIL [Concomitant]
     Indication: MIGRAINE

REACTIONS (2)
  - POST PROCEDURAL HAEMORRHAGE [None]
  - AMENORRHOEA [None]
